FAERS Safety Report 4675613-2 (Version None)
Quarter: 2005Q2

REPORT INFORMATION
  Report Type: 
  Country: None (occurrence: None)
  Receive Date: 20050527
  Receipt Date: 20050429
  Transmission Date: 20051028
  Serious: No
  Sender: FDA-Public Use
  Company Number: US-BRISTOL-MYERS SQUIBB COMPANY-12951281

PATIENT
  Age: 68 Year
  Sex: Male
  Weight: 158 kg

DRUGS (7)
  1. ABILIFY [Suspect]
     Indication: DEPRESSION
  2. LABETALOL [Concomitant]
  3. HUMALOG [Concomitant]
     Dosage: 75/25, 30 UNITS IN THE AM AND 15 UNITS IN THE PM
  4. AVANDIA [Concomitant]
  5. ACIPHEX [Concomitant]
  6. ASPIRIN [Concomitant]
  7. CLARINEX [Concomitant]

REACTIONS (2)
  - AGITATION [None]
  - INSOMNIA [None]
